FAERS Safety Report 8116613-X (Version None)
Quarter: 2012Q1

REPORT INFORMATION
  Report Type: 
  Country: None (occurrence: None)
  Receive Date: 20120206
  Receipt Date: 20120124
  Transmission Date: 20120608
  Serious: Yes (Hospitalization)
  Sender: FDA-Public Use
  Company Number: PHHY2012FR007312

PATIENT
  Age: 77 Year
  Sex: Male

DRUGS (7)
  1. CLONAZEPAM [Concomitant]
  2. GLEEVEC [Suspect]
     Indication: METASTATIC MALIGNANT MELANOMA
     Dosage: 400 MG, DAILY
     Dates: start: 20110826
  3. CLORAZEPATE DIPOTASSIUM [Concomitant]
  4. GLEEVEC [Suspect]
     Dosage: 400 MG, DAILY
     Dates: start: 20111101
  5. GLEEVEC [Suspect]
     Dosage: 400 MG, BID
     Dates: start: 20111003, end: 20111010
  6. EFFEXOR [Concomitant]
  7. ENALAPRIL MALEATE [Concomitant]

REACTIONS (13)
  - CONFUSIONAL STATE [None]
  - DELIRIUM [None]
  - PYRAMIDAL TRACT SYNDROME [None]
  - NEOPLASM MALIGNANT [None]
  - HALLUCINATION, VISUAL [None]
  - ANXIETY [None]
  - CEREBELLAR SYNDROME [None]
  - ENCEPHALITIS [None]
  - DEPRESSED MOOD [None]
  - NEUROPSYCHIATRIC SYNDROME [None]
  - VERTIGO [None]
  - NEOPLASM PROGRESSION [None]
  - COGNITIVE DISORDER [None]
